FAERS Safety Report 5471283-4 (Version None)
Quarter: 2007Q3

REPORT INFORMATION
  Report Type: 
  Country: None (occurrence: None)
  Receive Date: 20070928
  Receipt Date: 20070917
  Transmission Date: 20080115
  Serious: Yes (Death, Life-Threatening)
  Sender: FDA-Public Use
  Company Number: FR-ROCHE-110500

PATIENT
  Age: 57 Year
  Sex: Male
  Weight: 70 kg

DRUGS (5)
  1. ROCEPHIN [Suspect]
     Indication: PROPHYLAXIS
     Route: 042
     Dates: start: 19981113, end: 19981113
  2. MARCAINE [Suspect]
     Indication: SPINAL ANAESTHESIA
     Route: 050
     Dates: start: 19981113, end: 19981113
  3. ATARAX [Concomitant]
     Indication: SURGERY
     Route: 048
     Dates: start: 19981113, end: 19981113
  4. DIPRIVAN [Concomitant]
     Route: 042
     Dates: start: 19981113, end: 19981113
  5. LACTATED RINGER'S [Concomitant]
     Route: 042

REACTIONS (3)
  - ANAPHYLACTIC SHOCK [None]
  - COMA [None]
  - RESPIRATORY TRACT INFECTION [None]
